FAERS Safety Report 6748620-3 (Version None)
Quarter: 2010Q2

REPORT INFORMATION
  Report Type: 
  Country: None (occurrence: None)
  Receive Date: 20100601
  Receipt Date: 20100520
  Transmission Date: 20101027
  Serious: Yes (Other)
  Sender: FDA-Public Use
  Company Number: CA-JNJFOC-20100509309

PATIENT
  Sex: Female
  Weight: 60 kg

DRUGS (5)
  1. REMICADE [Suspect]
     Indication: CROHN'S DISEASE
     Route: 042
  2. IMURAN [Concomitant]
     Route: 048
  3. SULFASALAZINE [Concomitant]
  4. VITAMIN TAB [Concomitant]
  5. VITAMIN B-12 [Concomitant]

REACTIONS (1)
  - OSTEONECROSIS [None]
